FAERS Safety Report 7262278-9 (Version None)
Quarter: 2011Q1

REPORT INFORMATION
  Report Type: 
  Country: None (occurrence: None)
  Receive Date: 20110130
  Receipt Date: 20101115
  Transmission Date: 20110831
  Serious: No
  Sender: FDA-Public Use
  Company Number: US-ABBOTT-10P-163-0685571-00

PATIENT
  Age: 70 Year
  Sex: Female

DRUGS (12)
  1. CRESTOR [Concomitant]
     Indication: BLOOD CHOLESTEROL INCREASED
  2. METHOTREXATE [Concomitant]
     Indication: RHEUMATOID ARTHRITIS
  3. AMLODIPINE BESYLATE [Concomitant]
     Indication: HYPERTENSION
  4. VITAMINS AND SUPPLEMENTS [Concomitant]
     Indication: PRODUCT USED FOR UNKNOWN INDICATION
  5. FOLIC ACID [Concomitant]
     Indication: RHEUMATOID ARTHRITIS
  6. HUMIRA [Suspect]
     Indication: ARTHRITIS REACTIVE
     Dates: start: 20100201
  7. ATENOLOL [Concomitant]
     Indication: HYPERTENSION
  8. XANAX [Concomitant]
     Indication: ANXIETY
  9. LIDODONE PATCHES [Concomitant]
     Indication: PAIN
  10. LOSARTINE POTASSIUM [Concomitant]
     Indication: HYPERTENSION
  11. SYNTHROID [Concomitant]
     Indication: AUTOIMMUNE THYROIDITIS
  12. LUNESTA [Concomitant]
     Indication: INSOMNIA
     Dosage: AT BEDTIME

REACTIONS (3)
  - COUGH [None]
  - RHINORRHOEA [None]
  - OROPHARYNGEAL PAIN [None]
